FAERS Safety Report 19164192 (Version 1)
Quarter: 2021Q2

REPORT INFORMATION
  Report Type: Spontaneous
  Country: US (occurrence: US)
  Receive Date: 20210421
  Receipt Date: 20210421
  Transmission Date: 20210717
  Serious: Yes (Hospitalization, Other)
  Sender: FDA-Public Use
  Company Number: US-PFIZER INC-2021371994

PATIENT
  Age: 79 Year
  Sex: Male

DRUGS (3)
  1. NEURONTIN [Suspect]
     Active Substance: GABAPENTIN
     Dosage: 300 MG
  2. NEURONTIN [Suspect]
     Active Substance: GABAPENTIN
     Indication: RADICULOPATHY
     Dosage: 100 MG
  3. NEURONTIN [Suspect]
     Active Substance: GABAPENTIN
     Dosage: 100 MG, DAILY

REACTIONS (6)
  - Off label use [Unknown]
  - Drug withdrawal convulsions [Unknown]
  - Seizure [Unknown]
  - Status epilepticus [Unknown]
  - Hypoacusis [Recovered/Resolved]
  - Tremor [Unknown]
